FAERS Safety Report 10111321 (Version 1)
Quarter: 2014Q2

REPORT INFORMATION
  Report Type: Spontaneous
  Country: FR (occurrence: FR)
  Receive Date: 20140425
  Receipt Date: 20140425
  Transmission Date: 20141212
  Serious: Yes (Hospitalization)
  Sender: FDA-Public Use
  Company Number: FR-SA-2014SA052868

PATIENT
  Age: 80 Year
  Sex: Male

DRUGS (15)
  1. AMOXICILLIN/CLAVULANIC ACID [Suspect]
     Indication: PRODUCT USED FOR UNKNOWN INDICATION
     Route: 042
     Dates: start: 20140316, end: 20140318
  2. AMOXICILLIN/CLAVULANIC ACID [Suspect]
     Indication: PRODUCT USED FOR UNKNOWN INDICATION
     Route: 048
     Dates: start: 20140319, end: 20140320
  3. TRIATEC [Suspect]
     Indication: PRODUCT USED FOR UNKNOWN INDICATION
     Route: 048
     Dates: start: 20140319
  4. LASILIX [Suspect]
     Indication: PRODUCT USED FOR UNKNOWN INDICATION
     Route: 048
     Dates: start: 20140319
  5. BACTRIM FORTE [Suspect]
     Indication: PRODUCT USED FOR UNKNOWN INDICATION
     Route: 048
     Dates: start: 20140318, end: 20140325
  6. CORDARONE [Concomitant]
     Route: 048
  7. INIPOMP [Concomitant]
     Route: 048
  8. CRESTOR [Concomitant]
     Route: 048
  9. KARDEGIC [Concomitant]
     Route: 048
  10. LOVENOX [Concomitant]
     Route: 058
     Dates: start: 20140316
  11. POTASSIUM CHLORIDE [Concomitant]
  12. DIFFU K [Concomitant]
     Route: 048
     Dates: start: 20140319
  13. FUROSEMIDE [Concomitant]
     Dates: end: 20140318
  14. TAZOCILLINE [Concomitant]
     Route: 042
     Dates: start: 20140320, end: 20140327
  15. TAZOCILLINE [Concomitant]

REACTIONS (1)
  - Nephropathy [Recovered/Resolved]
